FAERS Safety Report 10880838 (Version 2)
Quarter: 2015Q2

REPORT INFORMATION
  Report Type: Report from Study
  Country: DE (occurrence: DE)
  Receive Date: 20150303
  Receipt Date: 20150427
  Transmission Date: 20150821
  Serious: Yes (Life-Threatening, Hospitalization, Other)
  Sender: FDA-Public Use
  Company Number: DE-BIOGENIDEC-2015BI022635

PATIENT
  Age: 32 Year
  Sex: Male
  Weight: 90 kg

DRUGS (1)
  1. PLEGRIDY [Suspect]
     Active Substance: PEGINTERFERON BETA-1A
     Indication: MULTIPLE SCLEROSIS
     Route: 058
     Dates: start: 20141105, end: 201502

REACTIONS (5)
  - Thrombotic thrombocytopenic purpura [Unknown]
  - Platelet count decreased [Not Recovered/Not Resolved]
  - Adverse drug reaction [Unknown]
  - Viral infection [Not Recovered/Not Resolved]
  - Renal failure [Not Recovered/Not Resolved]
